FAERS Safety Report 6696689-7 (Version None)
Quarter: 2010Q2

REPORT INFORMATION
  Report Type: 
  Country: None (occurrence: None)
  Receive Date: 20100421
  Receipt Date: 20091026
  Transmission Date: 20101027
  Serious: No
  Sender: FDA-Public Use
  Company Number: US-000044

PATIENT
  Sex: Female
  Weight: 48.3 kg

DRUGS (1)
  1. KUVAN [Suspect]
     Indication: PHENYLKETONURIA
     Dosage: 20 MG/KG QD ORAL
     Route: 048
     Dates: start: 20091014, end: 20091026

REACTIONS (1)
  - MIGRAINE [None]
